FAERS Safety Report 6061602-2 (Version None)
Quarter: 2009Q1

REPORT INFORMATION
  Report Type: 
  Country: None (occurrence: None)
  Receive Date: 20090202
  Receipt Date: 20090123
  Transmission Date: 20090719
  Serious: Yes (Hospitalization)
  Sender: FDA-Public Use
  Company Number: A0724613A

PATIENT
  Age: 65 Year
  Sex: Male
  Weight: 118.2 kg

DRUGS (7)
  1. AVANDIA [Suspect]
     Dosage: 4MG PER DAY
     Route: 048
     Dates: start: 20000101, end: 20070101
  2. METFORMIN [Concomitant]
  3. INSULIN [Concomitant]
  4. GLYBURIDE [Concomitant]
  5. TOPROL-XL [Concomitant]
  6. SIMVASTATIN [Concomitant]
  7. ISOSORBIDE DINITRATE [Concomitant]

REACTIONS (1)
  - MYOCARDIAL INFARCTION [None]
